FAERS Safety Report 19231224 (Version 2)
Quarter: 2021Q2

REPORT INFORMATION
  Report Type: Spontaneous
  Country: FR (occurrence: FR)
  Receive Date: 20210507
  Receipt Date: 20210609
  Transmission Date: 20210717
  Serious: Yes (Hospitalization)
  Sender: FDA-Public Use
  Company Number: FR-BAUSCH-BL-2021-015935

PATIENT
  Age: 70 Year
  Sex: Male

DRUGS (6)
  1. CARTEOL (CARTEOLOL HYDROCHLORIDE) [Suspect]
     Active Substance: CARTEOLOL HYDROCHLORIDE
     Indication: HYPERTONIA
     Route: 065
  2. RAMIPRIL. [Interacting]
     Active Substance: RAMIPRIL
     Indication: SINUS NODE DYSFUNCTION
     Route: 048
  3. KARDEGIC [Interacting]
     Active Substance: ASPIRIN DL-LYSINE
     Indication: SINUS NODE DYSFUNCTION
     Route: 048
  4. FLECAINE LP 200 [Interacting]
     Active Substance: FLECAINIDE
     Indication: SINUS NODE DYSFUNCTION
     Route: 048
  5. FUROSEMIDE. [Interacting]
     Active Substance: FUROSEMIDE
     Indication: SINUS NODE DYSFUNCTION
     Route: 048
  6. HYPERIUM [Interacting]
     Active Substance: RILMENIDINE PHOSPHATE
     Indication: SINUS NODE DYSFUNCTION
     Route: 048

REACTIONS (2)
  - Bradycardia [Unknown]
  - Drug interaction [Unknown]

NARRATIVE: CASE EVENT DATE: 2008
